FAERS Safety Report 7929951-8 (Version None)
Quarter: 2011Q4

REPORT INFORMATION
  Report Type: 
  Country: None (occurrence: None)
  Receive Date: 20111108
  Receipt Date: 20110121
  Transmission Date: 20120403
  Serious: Yes (Other)
  Sender: FDA-Public Use
  Company Number: PHHY2011US05325

PATIENT
  Age: 46 Year

DRUGS (2)
  1. NU-NAPROXEN (NAPROXEN) [Concomitant]
  2. ZOMETA [Suspect]
     Dosage: , INTRAVENOUS
     Route: 042

REACTIONS (2)
  - BONE LOSS [None]
  - OSTEONECROSIS OF JAW [None]
